FAERS Safety Report 5803070-9 (Version None)
Quarter: 2008Q3

REPORT INFORMATION
  Report Type: 
  Country: None (occurrence: None)
  Receive Date: 20080703
  Receipt Date: 20080623
  Transmission Date: 20090109
  Serious: Yes (Life-Threatening)
  Sender: FDA-Public Use
  Company Number: 001450

PATIENT
  Age: 15 Month
  Sex: Female

DRUGS (9)
  1. BUSULFEX [Suspect]
     Indication: STEM CELL TRANSPLANT
     Dosage: 3.9 ML, INTRAVENOUS; 5.2 ML, DAILY DOSE; INTRAVENOUS; 1.3 ML, DAILY DOSE; INTRAVENOUS
     Route: 042
     Dates: start: 20071030, end: 20071030
  2. BUSULFEX [Suspect]
     Indication: STEM CELL TRANSPLANT
     Dosage: 3.9 ML, INTRAVENOUS; 5.2 ML, DAILY DOSE; INTRAVENOUS; 1.3 ML, DAILY DOSE; INTRAVENOUS
     Route: 042
     Dates: start: 20071031, end: 20071102
  3. BUSULFEX [Suspect]
     Indication: STEM CELL TRANSPLANT
     Dosage: 3.9 ML, INTRAVENOUS; 5.2 ML, DAILY DOSE; INTRAVENOUS; 1.3 ML, DAILY DOSE; INTRAVENOUS
     Route: 042
     Dates: start: 20071103, end: 20071103
  4. ETOPOSIDE [Concomitant]
  5. CYCLOPHOSPHAMIDE [Concomitant]
  6. CLONZEPAM (CLONAZEPAM) [Concomitant]
  7. LENOGRASTIM (LENOGRASTIM) [Concomitant]
  8. METHOTREXATE [Concomitant]
  9. CYCLOSPORINE [Concomitant]

REACTIONS (7)
  - ACUTE LYMPHOCYTIC LEUKAEMIA RECURRENT [None]
  - ANOREXIA [None]
  - DIARRHOEA [None]
  - MALAISE [None]
  - NAUSEA [None]
  - STOMATITIS [None]
  - VOMITING [None]
